FAERS Safety Report 16938316 (Version 3)
Quarter: 2020Q1

REPORT INFORMATION
  Report Type: Report from Study
  Country: NL (occurrence: NL)
  Receive Date: 20191019
  Receipt Date: 20200303
  Transmission Date: 20200409
  Serious: Yes (Hospitalization)
  Sender: FDA-Public Use
  Company Number: NVSC2019NL008732

PATIENT
  Sex: Female

DRUGS (1)
  1. SANDOSTATIN LAR DEPOT [Suspect]
     Active Substance: OCTREOTIDE ACETATE
     Indication: GASTROINTESTINAL HAEMORRHAGE
     Dosage: UNK, QMO (20 MG/2ML)
     Route: 030

REACTIONS (3)
  - Product use in unapproved indication [Unknown]
  - Hepatic function abnormal [Not Recovered/Not Resolved]
  - Pneumonia [Unknown]
